FAERS Safety Report 7968693-X (Version None)
Quarter: 2011Q4

REPORT INFORMATION
  Report Type: 
  Country: None (occurrence: None)
  Receive Date: 20111207
  Receipt Date: 20111128
  Transmission Date: 20120403
  Serious: Yes (Hospitalization)
  Sender: FDA-Public Use
  Company Number: 1123670

PATIENT
  Age: 70 Year
  Sex: Female

DRUGS (4)
  1. DOCETAXEL [Suspect]
     Indication: BREAST CANCER
     Dosage: 75MG/M2, INTRAVENOUS (NOT OTHERWISE SPECIFIED)
     Dates: start: 20110715, end: 20110826
  2. LEVEMIR [Concomitant]
  3. (GLIBENESE /00390201/) [Concomitant]
  4. METFORMIN HCL [Concomitant]

REACTIONS (9)
  - DYSAESTHESIA [None]
  - NAUSEA [None]
  - ALOPECIA [None]
  - PALMAR-PLANTAR ERYTHRODYSAESTHESIA SYNDROME [None]
  - GAIT DISTURBANCE [None]
  - DIARRHOEA [None]
  - RADIATION MUCOSITIS [None]
  - DYSGEUSIA [None]
  - PARAESTHESIA [None]
